FAERS Safety Report 9925920 (Version 1)
Quarter: 2014Q1

REPORT INFORMATION
  Report Type: Spontaneous
  Country: DE (occurrence: DE)
  Receive Date: 20140226
  Receipt Date: 20140226
  Transmission Date: 20141002
  Serious: Yes (Other)
  Sender: FDA-Public Use
  Company Number: DE-TEVA-462788GER

PATIENT
  Age: 1 Day
  Sex: Female

DRUGS (3)
  1. LAMOTRIGIN [Suspect]
     Route: 064
  2. CITALOPRAM [Suspect]
     Route: 064
  3. VELNATAL PLUS [Concomitant]
     Route: 064

REACTIONS (3)
  - Neonatal infection [Recovered/Resolved]
  - Feeding disorder neonatal [Recovered/Resolved]
  - Somnolence [Recovered/Resolved]
